FAERS Safety Report 9185012 (Version 1)
Quarter: 2013Q1

REPORT INFORMATION
  Report Type: Spontaneous
  Country: US (occurrence: US)
  Receive Date: 20130325
  Receipt Date: 20130325
  Transmission Date: 20140127
  Serious: Yes (Other)
  Sender: FDA-Public Use
  Company Number: US-RB-051340-13

PATIENT
  Age: 85 Year
  Sex: Male

DRUGS (1)
  1. MUCINEX [Suspect]
     Indication: BRONCHITIS
     Dosage: TAKING MUCINEX FOR A BIT MORE THAN A WEEK
     Route: 048

REACTIONS (3)
  - Blood pressure increased [Not Recovered/Not Resolved]
  - Off label use [Not Recovered/Not Resolved]
  - Incorrect drug administration duration [Not Recovered/Not Resolved]
